FAERS Safety Report 18678592 (Version 1)
Quarter: 2020Q4

REPORT INFORMATION
  Report Type: Spontaneous
  Country: CN (occurrence: CN)
  Receive Date: 20201230
  Receipt Date: 20201230
  Transmission Date: 20210114
  Serious: Yes (Death)
  Sender: FDA-Public Use
  Company Number: CN-ASTRAZENECA-2020SF72879

PATIENT
  Age: 88 Year
  Sex: Male
  Weight: 83 kg

DRUGS (1)
  1. IMFINZI [Suspect]
     Active Substance: DURVALUMAB
     Indication: NON-SMALL CELL LUNG CANCER STAGE III
     Dosage: 1000 MG, THE DOSAGE OF LAST DRUG ADMINISTRATION WAS 1000 MG PER CYCLE.
     Route: 042
     Dates: start: 20200806, end: 20200828

REACTIONS (1)
  - Death [Fatal]

NARRATIVE: CASE EVENT DATE: 20200921
